FAERS Safety Report 10192815 (Version 2)
Quarter: 2014Q3

REPORT INFORMATION
  Report Type: Spontaneous
  Country: FR (occurrence: FR)
  Receive Date: 20140523
  Receipt Date: 20140829
  Transmission Date: 20150326
  Serious: Yes (Hospitalization)
  Sender: FDA-Public Use
  Company Number: FR-ALLERGAN-1410501US

PATIENT
  Age: 93 Year
  Sex: Female

DRUGS (7)
  1. TROSPIUM CHLORIDE UNK [Suspect]
     Active Substance: TROSPIUM CHLORIDE
     Indication: PRODUCT USED FOR UNKNOWN INDICATION
     Dosage: 20 MG, QD
     Route: 048
     Dates: end: 20140326
  2. KARDEGIC [Concomitant]
     Active Substance: ASPIRIN LYSINE
  3. SERESTA [Suspect]
     Active Substance: OXAZEPAM
     Indication: PRODUCT USED FOR UNKNOWN INDICATION
     Route: 048
  4. ATENOLOL. [Concomitant]
     Active Substance: ATENOLOL
  5. ALLOPURINOL. [Concomitant]
     Active Substance: ALLOPURINOL
  6. COAPROVEL [Concomitant]
     Active Substance: HYDROCHLOROTHIAZIDE\IRBESARTAN
  7. INEXIUM [Concomitant]
     Active Substance: ESOMEPRAZOLE

REACTIONS (3)
  - Hyperthermia [Recovered/Resolved]
  - Intestinal dilatation [Recovered/Resolved]
  - Abdominal pain [Recovered/Resolved]

NARRATIVE: CASE EVENT DATE: 20140321
